FAERS Safety Report 5893431-4 (Version None)
Quarter: 2008Q3

REPORT INFORMATION
  Report Type: 
  Country: None (occurrence: None)
  Receive Date: 20080922
  Receipt Date: 20080922
  Transmission Date: 20090109
  Serious: Yes (Other)
  Sender: FDA-Public Use
  Company Number: None

PATIENT
  Sex: Female
  Weight: 77.1115 kg

DRUGS (1)
  1. ACCUTANE [Suspect]
     Indication: ACNE
     Dosage: 30-90 MGS  1-2 TIMES- DAILY PO
     Route: 048
     Dates: start: 20041001, end: 20050523

REACTIONS (1)
  - DEPRESSION [None]
